FAERS Safety Report 16528907 (Version 1)
Quarter: 2019Q3

REPORT INFORMATION
  Report Type: Spontaneous
  Country: US (occurrence: US)
  Receive Date: 20190703
  Receipt Date: 20190703
  Transmission Date: 20191004
  Serious: Yes (Other)
  Sender: FDA-Public Use
  Company Number: PHHY2019US150934

PATIENT
  Age: 19 Year
  Sex: Male

DRUGS (9)
  1. RITUXIMAB. [Suspect]
     Active Substance: RITUXIMAB
     Indication: HAEMOLYTIC TRANSFUSION REACTION
     Dosage: 375 MG/M2, QD
     Route: 042
  2. METHYLPREDNISOLONE. [Suspect]
     Active Substance: METHYLPREDNISOLONE
     Indication: HAEMOLYTIC TRANSFUSION REACTION
     Dosage: 1 MG/KG, Q12H
     Route: 042
     Dates: start: 20180919
  3. METHYLPREDNISOLONE. [Suspect]
     Active Substance: METHYLPREDNISOLONE
     Dosage: 0.66 MG/KG, Q12H
     Route: 042
  4. METHYLPREDNISOLONE. [Suspect]
     Active Substance: METHYLPREDNISOLONE
     Dosage: 1 MG/KG, Q12H
     Route: 042
  5. DARBEPOETIN ALFA [Suspect]
     Active Substance: DARBEPOETIN ALFA
     Indication: HAEMOLYTIC TRANSFUSION REACTION
     Dosage: 600 UG, UNK
     Route: 058
  6. METHYLPREDNISOLONE. [Suspect]
     Active Substance: METHYLPREDNISOLONE
     Dosage: 1 MG/KG, Q24H
     Route: 042
  7. METHYLPREDNISOLONE. [Suspect]
     Active Substance: METHYLPREDNISOLONE
     Dosage: 1 MG/KG, Q6H
     Route: 042
  8. BORTEZOMIB. [Suspect]
     Active Substance: BORTEZOMIB
     Indication: HAEMOLYTIC TRANSFUSION REACTION
     Dosage: 2.1 MG, EVERY 72 HOURS
     Route: 058
  9. METHYLPREDNISOLONE. [Suspect]
     Active Substance: METHYLPREDNISOLONE
     Dosage: 2 MG/KG, Q6H
     Route: 042

REACTIONS (3)
  - Product use in unapproved indication [Unknown]
  - Haemoglobin decreased [Recovering/Resolving]
  - Listless [Recovering/Resolving]
